FAERS Safety Report 7720283-X (Version None)
Quarter: 2011Q3

REPORT INFORMATION
  Report Type: 
  Country: None (occurrence: None)
  Receive Date: 20110831
  Receipt Date: 20110824
  Transmission Date: 20111222
  Serious: Yes (Hospitalization, Other)
  Sender: FDA-Public Use
  Company Number: US-PFIZER INC-HQWYE597626AUG04

PATIENT
  Sex: Female
  Weight: 84 kg

DRUGS (17)
  1. MEDROXYPROGESTERONE ACETATE [Suspect]
     Dosage: 5 MG, UNK
     Route: 048
     Dates: start: 19960101, end: 19980501
  2. VERAPAMIL HYDROCHLORIDE [Concomitant]
     Indication: HYPERTENSION
     Dosage: UNK
     Dates: start: 19920101, end: 19990101
  3. PREMARIN [Suspect]
     Indication: HORMONE REPLACEMENT THERAPY
     Dosage: 0.625 MG, UNK
     Route: 048
     Dates: start: 19770101, end: 19900101
  4. HYDROCHLOROTHIAZIDE [Concomitant]
     Dosage: UNK
  5. LEVOTHYROXINE SODIUM [Concomitant]
     Indication: THYROID DISORDER
     Dosage: UNK
     Dates: start: 19790101
  6. PREMARIN [Suspect]
     Indication: HOT FLUSH
     Dosage: 0.625 MG, UNK
     Route: 048
     Dates: start: 19910101, end: 19960101
  7. PREMARIN [Suspect]
     Dosage: 0.625 MG, UNK
     Route: 048
     Dates: start: 19960101, end: 19980501
  8. ATENOLOL [Concomitant]
     Indication: HYPERTENSION
     Dosage: UNK
     Dates: start: 19980101
  9. PREMPRO [Suspect]
     Indication: HOT FLUSH
     Dosage: 0.625/ 2.5MG
     Route: 048
     Dates: start: 19990601, end: 19991201
  10. PREMPRO [Suspect]
     Indication: HORMONE REPLACEMENT THERAPY
     Dosage: 0.625/2.5MG
     Route: 048
     Dates: start: 19980601, end: 19990501
  11. PROVERA [Suspect]
     Dosage: 5 MG, UNK
     Route: 048
     Dates: start: 19910101, end: 19930101
  12. SYNTHROID [Concomitant]
     Indication: THYROID DISORDER
     Dosage: UNK
     Dates: start: 19790101
  13. PREMARIN [Suspect]
     Dosage: UNK
     Dates: start: 19990101, end: 20020101
  14. DIOVAN HCT [Concomitant]
     Indication: HYPERTENSION
     Dosage: UNK
     Dates: start: 19990101, end: 20110601
  15. GLYBURIDE [Concomitant]
     Indication: DIABETES MELLITUS
     Dosage: UNK
     Dates: start: 19980101
  16. PROVERA [Suspect]
     Indication: HORMONE REPLACEMENT THERAPY
     Dosage: 5 MG, UNK
     Route: 048
     Dates: start: 19770101, end: 19900101
  17. MEDROXYPROGESTERONE ACETATE [Suspect]
     Indication: HORMONE REPLACEMENT THERAPY
     Dosage: 5 MG, UNK
     Route: 048
     Dates: start: 19930101, end: 19960101

REACTIONS (1)
  - BREAST CANCER [None]
